FAERS Safety Report 15403213 (Version 2)
Quarter: 2018Q4

REPORT INFORMATION
  Report Type: Spontaneous
  Country: US (occurrence: US)
  Receive Date: 20180919
  Receipt Date: 20181016
  Transmission Date: 20190204
  Serious: No
  Sender: FDA-Public Use
  Company Number: US-GLAXOSMITHKLINE-US2018164323

PATIENT
  Age: 41 Year
  Sex: Female
  Weight: 286 kg

DRUGS (1)
  1. NUCALA [Suspect]
     Active Substance: MEPOLIZUMAB
     Indication: PRODUCT USED FOR UNKNOWN INDICATION
     Dosage: UNK UNK, CYC
     Route: 058
     Dates: start: 2017

REACTIONS (3)
  - Condition aggravated [Unknown]
  - Sinus disorder [Unknown]
  - Rash [Unknown]

NARRATIVE: CASE EVENT DATE: 20180908
